FAERS Safety Report 9767540 (Version 1)
Quarter: 2013Q4

REPORT INFORMATION
  Report Type: Spontaneous
  Country: US (occurrence: US)
  Receive Date: 20131217
  Receipt Date: 20131217
  Transmission Date: 20140711
  Serious: No
  Sender: FDA-Public Use
  Company Number: US-GILEAD-2009-0024061

PATIENT
  Sex: Male

DRUGS (1)
  1. VIREAD [Suspect]
     Dates: start: 20090831

REACTIONS (7)
  - Chills [Recovered/Resolved]
  - Hypoaesthesia oral [Unknown]
  - Nausea [Recovered/Resolved]
  - Vomiting [Recovered/Resolved]
  - Dyspnoea [Recovered/Resolved]
  - Abnormal dreams [Recovered/Resolved]
  - Anxiety [Unknown]
